FAERS Safety Report 24782542 (Version 6)
Quarter: 2025Q2

REPORT INFORMATION
  Report Type: Report from Study
  Country: US (occurrence: US)
  Receive Date: 20241227
  Receipt Date: 20250508
  Transmission Date: 20250717
  Serious: Yes (Other)
  Sender: TAKEDA
  Company Number: US-TAKEDA-2024TUS128893

PATIENT
  Sex: Male

DRUGS (4)
  1. IXAZOMIB [Suspect]
     Active Substance: IXAZOMIB
     Indication: Plasma cell myeloma
  2. IXAZOMIB [Suspect]
     Active Substance: IXAZOMIB
  3. IXAZOMIB [Suspect]
     Active Substance: IXAZOMIB
     Dosage: 3 MILLIGRAM, 1/WEEK
  4. IXAZOMIB [Suspect]
     Active Substance: IXAZOMIB
     Dosage: 3 MILLIGRAM, 1/WEEK

REACTIONS (9)
  - Neoplasm malignant [Unknown]
  - Parkinson^s disease [Unknown]
  - Neuropathy peripheral [Unknown]
  - Stomatitis [Unknown]
  - Dyspepsia [Unknown]
  - Condition aggravated [Unknown]
  - Insomnia [Unknown]
  - Product packaging issue [Unknown]
  - Brain fog [Not Recovered/Not Resolved]
